FAERS Safety Report 7205908-X (Version None)
Quarter: 2011Q1

REPORT INFORMATION
  Report Type: 
  Country: None (occurrence: None)
  Receive Date: 20110101
  Receipt Date: 20101220
  Transmission Date: 20110831
  Serious: Yes (Other)
  Sender: FDA-Public Use
  Company Number: ES-ELI_LILLY_AND_COMPANY-ES201012004665

PATIENT
  Sex: Female

DRUGS (7)
  1. SINVASTATINA [Concomitant]
     Indication: HYPERCHOLESTEROLAEMIA
     Dosage: 20 MG, DAILY (1/D)
     Route: 048
  2. LYRICA [Concomitant]
     Indication: PAIN
     Dosage: 75 MG, 2/D
     Route: 048
  3. CO VALS [Concomitant]
     Indication: HYPERTENSION
     Dosage: 80 MG, DAILY (1/D)
     Route: 048
  4. ACETAMINOPHEN [Concomitant]
     Indication: PAIN
     Dosage: 650 MG, 3/D
     Route: 048
  5. DISNAL [Concomitant]
     Indication: OSTEOPOROSIS
     Dosage: 60 MG, 2/D
     Route: 048
  6. FORTEO [Suspect]
     Indication: OSTEOPOROSIS
     Dosage: 20 UG, DAILY (1/D)
     Route: 058
     Dates: start: 20100201
  7. ALPRAZOLAN [Concomitant]
     Indication: ANXIETY
     Dosage: 0.25 MG, 2/D
     Route: 048

REACTIONS (4)
  - FALL [None]
  - ANAEMIA [None]
  - HIP FRACTURE [None]
  - DECREASED APPETITE [None]
